FAERS Safety Report 9688432 (Version 1)
Quarter: 2013Q4

REPORT INFORMATION
  Report Type: Spontaneous
  Country: AT (occurrence: AT)
  Receive Date: 20131114
  Receipt Date: 20131114
  Transmission Date: 20140711
  Serious: Yes (Death)
  Sender: FDA-Public Use
  Company Number: AT-ACTELION-A-CH2013-91067

PATIENT
  Age: 57 Year
  Sex: Male

DRUGS (1)
  1. TRACLEER [Suspect]
     Indication: SKIN ULCER
     Dosage: 125 MG, UNK
     Route: 048

REACTIONS (3)
  - Lung neoplasm malignant [Fatal]
  - Metastases to bone [Fatal]
  - Metastases to liver [Fatal]
